FAERS Safety Report 6668846-7 (Version None)
Quarter: 2010Q2

REPORT INFORMATION
  Report Type: 
  Country: None (occurrence: None)
  Receive Date: 20100402
  Receipt Date: 20100325
  Transmission Date: 20101027
  Serious: Yes (Life-Threatening)
  Sender: FDA-Public Use
  Company Number: 97303

PATIENT
  Sex: Male

DRUGS (1)
  1. LEUCOVORIN CALCIUM [Suspect]

REACTIONS (1)
  - RESPIRATORY DEPRESSION [None]
